FAERS Safety Report 6492581-1 (Version None)
Quarter: 2009Q4

REPORT INFORMATION
  Report Type: 
  Country: None (occurrence: None)
  Receive Date: 20091214
  Receipt Date: 20091207
  Transmission Date: 20100525
  Serious: Yes (Other)
  Sender: FDA-Public Use
  Company Number: GB-BRISTOL-MYERS SQUIBB COMPANY-14886675

PATIENT
  Age: 27 Year
  Sex: Female

DRUGS (4)
  1. PACLITAXEL [Suspect]
     Indication: CERVIX CARCINOMA
     Dates: start: 20080403, end: 20080509
  2. CISPLATIN [Suspect]
     Indication: CERVIX CARCINOMA
     Dates: start: 20080514, end: 20080618
  3. CARBOPLATIN [Suspect]
     Indication: CERVIX CARCINOMA
     Dates: start: 20080403, end: 20080509
  4. RADIOTHERAPY [Suspect]
     Indication: CERVIX CARCINOMA
     Dates: start: 20080512, end: 20080618

REACTIONS (2)
  - ANAEMIA [None]
  - CHEST PAIN [None]
